FAERS Safety Report 8529005-6 (Version None)
Quarter: 2012Q3

REPORT INFORMATION
  Report Type: 
  Country: None (occurrence: None)
  Receive Date: 20120716
  Receipt Date: 20120716
  Transmission Date: 20120928
  Serious: Yes (Hospitalization)
  Sender: FDA-Public Use
  Company Number: None

PATIENT
  Sex: Female
  Weight: 23.9 kg

DRUGS (3)
  1. VINCRISTINE SULFATE [Suspect]
     Dosage: 5.6 MG
  2. ETOPOSIDE [Suspect]
     Dosage: 1120 MG
  3. CARBOPLATIN [Suspect]
     Dosage: 2092 MG

REACTIONS (2)
  - BLAST CELLS PRESENT [None]
  - ACUTE MONOCYTIC LEUKAEMIA [None]
